FAERS Safety Report 9510450 (Version 1)
Quarter: 2013Q3

REPORT INFORMATION
  Report Type: Spontaneous
  Country: GB (occurrence: GB)
  Receive Date: 20130909
  Receipt Date: 20130909
  Transmission Date: 20140515
  Serious: Yes (Hospitalization)
  Sender: FDA-Public Use
  Company Number: GB-TEVA-430065ISR

PATIENT
  Age: 81 Year
  Sex: Male

DRUGS (4)
  1. PREDNISOLONE [Suspect]
     Indication: LOWER RESPIRATORY TRACT INFECTION
     Dosage: 30 MILLIGRAM DAILY; ONCE DAILY IN THE MORNING, 7 DAY COURSE
     Route: 048
     Dates: start: 20121016
  2. INHALERS [Concomitant]
  3. PARACETAMOL [Concomitant]
  4. AMOXICILLIN [Concomitant]
     Dosage: 750 MILLIGRAM DAILY;

REACTIONS (3)
  - Upper gastrointestinal haemorrhage [Unknown]
  - Pneumonia [Unknown]
  - Renal failure acute [Unknown]
